FAERS Safety Report 17909052 (Version 1)
Quarter: 2020Q2

REPORT INFORMATION
  Report Type: Spontaneous
  Country: US (occurrence: US)
  Receive Date: 20200617
  Receipt Date: 20200617
  Transmission Date: 20200714
  Serious: No
  Sender: FDA-Public Use
  Company Number: US-TEVA-2020-US-1247602

PATIENT
  Age: 78 Year
  Sex: Male

DRUGS (1)
  1. TESTOSTERONE. [Suspect]
     Active Substance: TESTOSTERONE
     Route: 065

REACTIONS (4)
  - Skin exfoliation [Unknown]
  - Application site irritation [Recovered/Resolved]
  - Sunburn [Recovered/Resolved]
  - Application site rash [Recovered/Resolved]
